FAERS Safety Report 10730344 (Version 6)
Quarter: 2017Q1

REPORT INFORMATION
  Report Type: Spontaneous
  Country: US (occurrence: US)
  Receive Date: 20150122
  Receipt Date: 20170215
  Transmission Date: 20170428
  Serious: Yes (Disabling)
  Sender: FDA-Public Use
  Company Number: US-009507513-1109USA00174

PATIENT
  Sex: Male
  Weight: 88.44 kg

DRUGS (1)
  1. PROPECIA [Suspect]
     Active Substance: FINASTERIDE
     Indication: ALOPECIA
     Dosage: 1 MG, QD
     Route: 048
     Dates: start: 20061016, end: 20081013

REACTIONS (23)
  - Nocturia [Unknown]
  - Essential hypertension [Unknown]
  - Acute sinusitis [Unknown]
  - Musculoskeletal pain [Unknown]
  - Erectile dysfunction [Not Recovered/Not Resolved]
  - Semen volume decreased [Not Recovered/Not Resolved]
  - Haematocrit increased [Unknown]
  - Sexual dysfunction [Not Recovered/Not Resolved]
  - Depression [Not Recovered/Not Resolved]
  - Hyperprolactinaemia [Unknown]
  - Cognitive disorder [Not Recovered/Not Resolved]
  - Libido decreased [Not Recovered/Not Resolved]
  - Abdominal pain [Unknown]
  - Angiopathy [Unknown]
  - Skin striae [Unknown]
  - Thyroid disorder [Unknown]
  - Acne [Unknown]
  - Anxiety [Not Recovered/Not Resolved]
  - Testicular pain [Not Recovered/Not Resolved]
  - Psychogenic erectile dysfunction [Unknown]
  - Pituitary-dependent Cushing^s syndrome [Unknown]
  - Asthma [Recovered/Resolved]
  - Medication error [Unknown]

NARRATIVE: CASE EVENT DATE: 20061016
